FAERS Safety Report 14033853 (Version 1)
Quarter: 2017Q4

REPORT INFORMATION
  Report Type: Spontaneous
  Country: RU (occurrence: RU)
  Receive Date: 20171003
  Receipt Date: 20171003
  Transmission Date: 20180321
  Serious: Yes (Death, Hospitalization, Other)
  Sender: FDA-Public Use
  Company Number: RU-ACTELION-A-CH2017-159873

PATIENT
  Age: 33 Year
  Sex: Female
  Weight: 40 kg

DRUGS (2)
  1. ZAVESCA [Suspect]
     Active Substance: MIGLUSTAT
     Indication: NIEMANN-PICK DISEASE
     Dosage: 400 UNK, BID
     Route: 048
     Dates: start: 2017, end: 20170918
  2. ZAVESCA [Suspect]
     Active Substance: MIGLUSTAT
     Dosage: 100 UNK, OD
     Route: 048
     Dates: start: 20170501, end: 2017

REACTIONS (13)
  - Niemann-Pick disease [Fatal]
  - Pseudobulbar palsy [Fatal]
  - Aspiration [Unknown]
  - Cognitive disorder [Fatal]
  - Disease progression [Fatal]
  - Dysphagia [Fatal]
  - IIIrd nerve disorder [Fatal]
  - Abnormal behaviour [Fatal]
  - Cachexia [Fatal]
  - Ataxia [Fatal]
  - Gastrostomy [Unknown]
  - Pneumonia aspiration [Unknown]
  - Ileus paralytic [Unknown]

NARRATIVE: CASE EVENT DATE: 20170607
